FAERS Safety Report 8509446-3 (Version None)
Quarter: 2012Q3

REPORT INFORMATION
  Report Type: 
  Country: None (occurrence: None)
  Receive Date: 20120713
  Receipt Date: 20120711
  Transmission Date: 20120928
  Serious: Yes (Hospitalization)
  Sender: FDA-Public Use
  Company Number: US-TEVA-348032USA

PATIENT
  Sex: Male

DRUGS (5)
  1. METFORMIN HYDROCHLORIDE [Suspect]
     Indication: TYPE 2 DIABETES MELLITUS
  2. PIOGLITAZONE HYDROCHLORIDE [Suspect]
     Indication: TYPE 2 DIABETES MELLITUS
     Dates: start: 20100221
  3. SAXAGLIPTIN [Suspect]
     Indication: TYPE 2 DIABETES MELLITUS
     Dates: start: 20100908
  4. GLYBURIDE [Suspect]
     Indication: TYPE 2 DIABETES MELLITUS
  5. METHOTREXATE [Suspect]
     Dosage: STOPPED FOREVER AFTER 5 YEARS OF USE
     Dates: start: 20100908

REACTIONS (1)
  - DYSPNOEA [None]
